FAERS Safety Report 5259054-5 (Version None)
Quarter: 2007Q1

REPORT INFORMATION
  Report Type: 
  Country: None (occurrence: None)
  Receive Date: 20070308
  Receipt Date: 20070208
  Transmission Date: 20070707
  Serious: Yes (Other)
  Sender: FDA-Public Use
  Company Number: US-PFIZER INC-2007017206

PATIENT
  Age: 35 Year
  Sex: Male

DRUGS (1)
  1. GEODON [Suspect]

REACTIONS (3)
  - MYALGIA [None]
  - RESTLESSNESS [None]
  - SUICIDAL IDEATION [None]
